FAERS Safety Report 4532472-6 (Version None)
Quarter: 2004Q4

REPORT INFORMATION
  Report Type: 
  Country: None (occurrence: None)
  Receive Date: 20041220
  Receipt Date: 20041025
  Transmission Date: 20050328
  Serious: No
  Sender: FDA-Public Use
  Company Number: US-MERCK-0410USA03671

PATIENT
  Age: 75 Year
  Sex: Male

DRUGS (4)
  1. VIOXX [Suspect]
     Indication: OSTEOARTHRITIS
     Route: 048
     Dates: start: 20020924, end: 20021229
  2. VIOXX [Suspect]
     Route: 048
     Dates: start: 20021230, end: 20040801
  3. NORVASC [Concomitant]
     Route: 065
  4. ATENOLOL [Concomitant]
     Route: 065

REACTIONS (4)
  - ABDOMINAL PAIN UPPER [None]
  - BRONCHITIS [None]
  - COLONIC POLYP [None]
  - RECTAL HAEMORRHAGE [None]
